FAERS Safety Report 6178158-6 (Version None)
Quarter: 2009Q2

REPORT INFORMATION
  Report Type: 
  Country: None (occurrence: None)
  Receive Date: 20090430
  Receipt Date: 20090420
  Transmission Date: 20091009
  Serious: Yes (Other)
  Sender: FDA-Public Use
  Company Number: GXKR2009JP04830

PATIENT
  Age: 31 Year
  Sex: Male

DRUGS (4)
  1. BLEOMYCIN SULFATE [Suspect]
     Indication: SEMINOMA
  2. ETOPOSIDE [Suspect]
     Indication: SEMINOMA
  3. CISPLATIN [Suspect]
     Indication: SEMINOMA
  4. DEXAMETHASONE [Suspect]
     Indication: ANTIEMETIC SUPPORTIVE CARE
     Dosage: 80 MG/DAY

REACTIONS (10)
  - ASTHENIA [None]
  - BLOOD PRESSURE DECREASED [None]
  - CEREBRAL HAEMORRHAGE [None]
  - CEREBRAL INFARCTION [None]
  - CEREBRAL ISCHAEMIA [None]
  - CONVULSION [None]
  - DIARRHOEA [None]
  - HEMIPLEGIA [None]
  - LOSS OF CONSCIOUSNESS [None]
  - NAUSEA [None]
